FAERS Safety Report 4727608-8 (Version None)
Quarter: 2005Q3

REPORT INFORMATION
  Report Type: 
  Country: None (occurrence: None)
  Receive Date: 20050728
  Receipt Date: 20050719
  Transmission Date: 20060218
  Serious: Yes (Hospitalization)
  Sender: FDA-Public Use
  Company Number: FR-BRISTOL-MYERS SQUIBB COMPANY-13046412

PATIENT
  Age: 81 Year
  Sex: Male

DRUGS (6)
  1. PRAVASTATIN [Suspect]
     Route: 048
     Dates: start: 20050118
  2. KARDEGIC [Suspect]
     Route: 048
     Dates: start: 20050118
  3. AMLODIPINE BESYLATE [Suspect]
     Route: 048
     Dates: start: 20050118
  4. ZECLAR [Suspect]
     Route: 048
     Dates: start: 20050524, end: 20050531
  5. INIPOMP [Suspect]
     Route: 048
     Dates: start: 20050118
  6. THALIDOMIDE [Suspect]
     Route: 048
     Dates: start: 20050118, end: 20050708

REACTIONS (2)
  - PANCYTOPENIA [None]
  - RENAL FAILURE ACUTE [None]
